FAERS Safety Report 7830816-0 (Version None)
Quarter: 2011Q4

REPORT INFORMATION
  Report Type: 
  Country: None (occurrence: None)
  Receive Date: 20111021
  Receipt Date: 20111014
  Transmission Date: 20120403
  Serious: Yes (Death)
  Sender: FDA-Public Use
  Company Number: JP-GLAXOSMITHKLINE-B0750800A

PATIENT
  Sex: Male

DRUGS (6)
  1. LENDORMIN [Concomitant]
     Indication: INSOMNIA
     Dosage: .25MG PER DAY
     Route: 048
     Dates: start: 20100401
  2. AMOBAN [Concomitant]
     Indication: INSOMNIA
     Dosage: 7.5MG PER DAY
     Route: 048
     Dates: start: 20110915
  3. ROZEREM [Concomitant]
     Indication: INSOMNIA
     Dosage: 8MG PER DAY
     Route: 048
     Dates: start: 20101101
  4. ZYPREXA [Concomitant]
     Indication: BIPOLAR DISORDER
     Dosage: 5MG PER DAY
     Route: 048
     Dates: start: 20100401, end: 20110901
  5. ROHYPNOL [Concomitant]
     Indication: INSOMNIA
     Dosage: 2MG PER DAY
     Route: 048
     Dates: start: 20110801
  6. LAMICTAL [Suspect]
     Indication: BIPOLAR I DISORDER
     Dosage: 25MG PER DAY
     Route: 048
     Dates: start: 20110916, end: 20110916

REACTIONS (4)
  - SHOCK HAEMORRHAGIC [None]
  - INSOMNIA [None]
  - COMPLETED SUICIDE [None]
  - MULTIPLE INJURIES [None]
